FAERS Safety Report 6339424-4 (Version None)
Quarter: 2009Q3

REPORT INFORMATION
  Report Type: 
  Country: None (occurrence: None)
  Receive Date: 20090903
  Receipt Date: 20090825
  Transmission Date: 20100115
  Serious: Yes (Hospitalization, Other)
  Sender: FDA-Public Use
  Company Number: US-ELI_LILLY_AND_COMPANY-US200906006991

PATIENT
  Sex: Male

DRUGS (15)
  1. HUMALOG [Suspect]
     Indication: DIABETES MELLITUS
     Dosage: UNK, UNK
     Dates: start: 20090601, end: 20090601
  2. HUMALOG [Suspect]
  3. HUMALOG [Suspect]
  4. HUMULIN N [Suspect]
  5. PLAVIX [Concomitant]
     Indication: CARDIAC DISORDER
     Dosage: 75 MG, UNK
  6. MICARDIS [Concomitant]
     Dosage: 40 MG, UNK
  7. TRILEPTAL [Concomitant]
  8. SIMVASTATIN [Concomitant]
     Dosage: 40 MG, UNK
  9. ASPIRIN [Concomitant]
     Dosage: 81 MG, DAILY (1/D)
  10. LOVAZA [Concomitant]
  11. VITAMIN B COMPLEX CAP [Concomitant]
  12. CO-Q10 [Concomitant]
     Dosage: 100 MG, UNK
  13. ASCORBIC ACID [Concomitant]
  14. LIPITOR [Concomitant]
  15. METOPROLOL [Concomitant]

REACTIONS (6)
  - BLOOD GLUCOSE INCREASED [None]
  - CEREBROVASCULAR ACCIDENT [None]
  - CONVULSION [None]
  - GAIT DISTURBANCE [None]
  - HEMIPARESIS [None]
  - HOSPITALISATION [None]
